FAERS Safety Report 7304199-9 (Version None)
Quarter: 2011Q1

REPORT INFORMATION
  Report Type: 
  Country: None (occurrence: None)
  Receive Date: 20110221
  Receipt Date: 20110208
  Transmission Date: 20110831
  Serious: Yes (Hospitalization)
  Sender: FDA-Public Use
  Company Number: US-BAYER-2010-003169

PATIENT
  Sex: Female
  Weight: 109 kg

DRUGS (1)
  1. YAZ [Suspect]
     Indication: PRODUCT USED FOR UNKNOWN INDICATION
     Dosage: UNK
     Route: 048
     Dates: start: 20080401, end: 20090417

REACTIONS (9)
  - INJURY [None]
  - CHOLELITHIASIS [None]
  - JAUNDICE [None]
  - CHOLECYSTITIS CHRONIC [None]
  - BILE DUCT STONE [None]
  - NAUSEA [None]
  - ABDOMINAL PAIN UPPER [None]
  - BLOOD BILIRUBIN INCREASED [None]
  - CHOLANGITIS [None]
